FAERS Safety Report 5530352-0 (Version None)
Quarter: 2007Q4

REPORT INFORMATION
  Report Type: 
  Country: None (occurrence: None)
  Receive Date: 20071130
  Receipt Date: 20071122
  Transmission Date: 20080405
  Serious: Yes (Other)
  Sender: FDA-Public Use
  Company Number: SE-ROCHE-531884

PATIENT
  Age: 40 Year
  Sex: Male

DRUGS (8)
  1. ROCEPHALIN [Suspect]
     Dosage: DOSE FORM: POWDER FOR SOLUTION FOR INFUSION.
     Route: 042
     Dates: start: 20071026, end: 20071027
  2. PERFALGAN [Concomitant]
     Dosage: SOLUTION FOR INFUSION
  3. PROPAVAN [Concomitant]
  4. IMUREL [Concomitant]
  5. 1 CONCOMITANT DRUG [Concomitant]
  6. VANCOMYCIN [Concomitant]
  7. 1 CONCOMITANT DRUG [Concomitant]
  8. TAZOCIN [Concomitant]

REACTIONS (1)
  - PANCYTOPENIA [None]
